FAERS Safety Report 23626056 (Version 1)
Quarter: 2024Q1

REPORT INFORMATION
  Report Type: Spontaneous
  Country: US (occurrence: US)
  Receive Date: 20240313
  Receipt Date: 20240313
  Transmission Date: 20240409
  Serious: No
  Sender: FDA-Public Use
  Company Number: US-AMGEN-USASP2024048820

PATIENT

DRUGS (3)
  1. BEVACIZUMAB [Suspect]
     Active Substance: BEVACIZUMAB
     Indication: Mixed hepatocellular cholangiocarcinoma
     Dosage: UNK
     Route: 065
  2. ATEZOLIZUMAB [Concomitant]
     Active Substance: ATEZOLIZUMAB
     Indication: Mixed hepatocellular cholangiocarcinoma
     Route: 065
  3. CISPLATIN;GEMCITABINE [Concomitant]
     Indication: Mixed hepatocellular cholangiocarcinoma
     Route: 065

REACTIONS (4)
  - Drug effective for unapproved indication [Unknown]
  - TP53 gene mutation [Unknown]
  - Gene mutation [Unknown]
  - Off label use [Unknown]
